FAERS Safety Report 16211744 (Version 1)
Quarter: 2019Q2

REPORT INFORMATION
  Report Type: Spontaneous
  Country: TR (occurrence: TR)
  Receive Date: 20190418
  Receipt Date: 20190418
  Transmission Date: 20190711
  Serious: Yes (Other)
  Sender: FDA-Public Use
  Company Number: TR-BAYER-2019-072051

PATIENT
  Age: 66 Year
  Sex: Female

DRUGS (3)
  1. PAROL [Concomitant]
     Active Substance: ACETAMINOPHEN
     Dosage: 500 MG, TID
  2. AVELOX [Suspect]
     Active Substance: MOXIFLOXACIN HYDROCHLORIDE
     Indication: PNEUMONIA
     Dosage: 400 DF, QD
     Route: 048
  3. ERDOSTIN [Concomitant]
     Dosage: 300 MG, BID

REACTIONS (5)
  - Neuropsychiatric symptoms [Recovered/Resolved]
  - Hyperglycaemia [Recovering/Resolving]
  - Mood altered [Recovered/Resolved]
  - Hallucination, visual [Recovered/Resolved]
  - Abnormal behaviour [Recovered/Resolved]
